FAERS Safety Report 9399032 (Version 2)
Quarter: 2013Q3

REPORT INFORMATION
  Report Type: Spontaneous
  Country: FR (occurrence: FR)
  Receive Date: 20130715
  Receipt Date: 20130731
  Transmission Date: 20140515
  Serious: Yes (Hospitalization)
  Sender: FDA-Public Use
  Company Number: FR-PFIZER INC-2013203393

PATIENT
  Age: 91 Year
  Sex: Female

DRUGS (6)
  1. CELEBREX [Suspect]
     Dosage: 200 MG, 1X/DAY
     Route: 048
     Dates: end: 20130618
  2. CITALOPRAM ACTAVIS /00582602/ [Suspect]
     Dosage: 20 MG, 1X/DAY
     Route: 048
     Dates: start: 20130610, end: 20130618
  3. IMOVANE [Concomitant]
     Dosage: 3.75 MG, 1X/DAY
     Route: 048
  4. LACRIFLUID [Concomitant]
     Dosage: UNK
     Route: 047
  5. CROMEDIL [Concomitant]
     Dosage: UNK
     Route: 047
  6. GAVISCON [Concomitant]
     Dosage: UNK

REACTIONS (2)
  - Hyponatraemia [Unknown]
  - Confusional state [Unknown]
